FAERS Safety Report 7467274-4 (Version None)
Quarter: 2011Q2

REPORT INFORMATION
  Report Type: 
  Country: None (occurrence: None)
  Receive Date: 20110509
  Receipt Date: 20101118
  Transmission Date: 20111010
  Serious: Yes (Other)
  Sender: FDA-Public Use
  Company Number: US-ALEXION-A201001452

PATIENT
  Sex: Female

DRUGS (14)
  1. VITAMIN A [Concomitant]
     Dosage: UNK
  2. METFORMIN [Concomitant]
     Dosage: UNK
  3. TRIAMTERENE [Concomitant]
     Dosage: UNK
  4. FISH OIL [Concomitant]
     Dosage: UNK
  5. ZOCOR [Concomitant]
     Dosage: UNK
  6. PREDNISONE [Concomitant]
     Dosage: UNK
  7. AMLODIPINE BESYLATE [Concomitant]
     Dosage: UNK
  8. FOLIC ACID [Concomitant]
     Dosage: UNK
  9. ENALAPRIL [Concomitant]
     Dosage: UNK
  10. LANTUS [Concomitant]
     Dosage: UNK
  11. ENOXAPARIN [Concomitant]
     Dosage: UNK
  12. ATENOLOL [Concomitant]
     Dosage: UNK
  13. SOLIRIS [Suspect]
     Indication: PAROXYSMAL NOCTURNAL HAEMOGLOBINURIA
     Dosage: 600 MG, QW
     Route: 042
     Dates: start: 20101108
  14. CALCIUM [Concomitant]
     Dosage: UNK

REACTIONS (1)
  - BLOOD GLUCOSE ABNORMAL [None]
